FAERS Safety Report 4652531-7 (Version None)
Quarter: 2005Q2

REPORT INFORMATION
  Report Type: 
  Country: None (occurrence: None)
  Receive Date: 20050502
  Receipt Date: 20050418
  Transmission Date: 20051028
  Serious: Yes (Hospitalization, Other)
  Sender: FDA-Public Use
  Company Number: CIP05000887

PATIENT
  Age: 3 Year
  Sex: Male

DRUGS (14)
  1. DANTRIUM [Suspect]
     Indication: CEREBRAL PALSY
     Dosage: 2.5 MG, DAILY, ORAL
     Route: 048
     Dates: start: 20041117, end: 20050405
  2. DEPAKENE [Concomitant]
  3. CARBAMAZEPINE [Concomitant]
  4. ADEROXAL (PYRIDOXAL PHOSPHATE) [Concomitant]
  5. DIAZEPAM [Concomitant]
  6. TRICLORYL (TRICLOFOS SODIUM) [Concomitant]
  7. DIAZEPAM [Concomitant]
  8. MUCODYNE (CARBOCISTEINE) [Concomitant]
  9. BISOLVON (BROMHEXINE HYDROCHLORIDE) [Concomitant]
  10. HOKUNALIN (TULOBUTEROL HYDROCHLORIDE) TAPE [Concomitant]
  11. SOLITA-T 3G (SODIUM LACTATE, CARBOHYDRATES NOS, SODIUM CHLORIDE, POTAS [Concomitant]
  12. PANVITAN (VITAMINS NOS) [Concomitant]
  13. LAC B (LACTOBACILLUS BIFIDUS, LYOPHILIZED) [Concomitant]
  14. MILLACT (TILACTASE) [Concomitant]

REACTIONS (16)
  - ABNORMAL FAECES [None]
  - ASPARTATE AMINOTRANSFERASE INCREASED [None]
  - BAND NEUTROPHIL PERCENTAGE INCREASED [None]
  - BASOPHIL COUNT INCREASED [None]
  - BLOOD ALKALINE PHOSPHATASE INCREASED [None]
  - BLOOD UREA DECREASED [None]
  - DIARRHOEA [None]
  - HAEMATOCHEZIA [None]
  - HEART RATE INCREASED [None]
  - INFLAMMATORY BOWEL DISEASE [None]
  - KERATOPATHY [None]
  - LYMPHOCYTE PERCENTAGE DECREASED [None]
  - NEUTROPHIL PERCENTAGE INCREASED [None]
  - PROTHROMBIN TIME PROLONGED [None]
  - THERAPY NON-RESPONDER [None]
  - WHITE BLOOD CELL COUNT INCREASED [None]
